FAERS Safety Report 8896049 (Version 2)
Quarter: 2013Q1

REPORT INFORMATION
  Report Type: Spontaneous
  Country: BR (occurrence: BR)
  Receive Date: 20121108
  Receipt Date: 20130115
  Transmission Date: 20140127
  Serious: Yes (Other)
  Sender: FDA-Public Use
  Company Number: BR-ROCHE-1151355

PATIENT
  Age: 58 Year
  Sex: Female
  Weight: 75 kg

DRUGS (7)
  1. RIVOTRIL [Suspect]
     Indication: ANXIETY
     Dosage: FREQUENCY: 0.5 ONCE A DAY
     Route: 065
  2. RIVOTRIL [Suspect]
     Indication: FEELING OF RELAXATION
  3. CYMBALTA [Concomitant]
     Indication: DEPRESSION
     Route: 065
  4. GLIFAGE XR [Concomitant]
     Indication: DIABETES MELLITUS
     Route: 065
  5. TENORETIC [Concomitant]
     Indication: BLOOD PRESSURE
     Route: 065
  6. AMLODIPINE [Concomitant]
     Indication: BLOOD PRESSURE
     Route: 065
  7. SINVASCOR [Concomitant]
     Indication: BLOOD CHOLESTEROL
     Dosage: DOSE: 0.5 ONCE A DAY
     Route: 065

REACTIONS (12)
  - Deafness unilateral [Unknown]
  - Skin discolouration [Unknown]
  - Local swelling [Unknown]
  - Erythema [Not Recovered/Not Resolved]
  - Blood triglycerides increased [Unknown]
  - Gamma-glutamyltransferase increased [Unknown]
  - Aspartate aminotransferase increased [Unknown]
  - Alanine aminotransferase increased [Unknown]
  - Blood glucose increased [Unknown]
  - Stress [Unknown]
  - Nightmare [Unknown]
  - Depression [Unknown]
